FAERS Safety Report 9325406 (Version 2)
Quarter: 2013Q3

REPORT INFORMATION
  Report Type: Spontaneous
  Country: IT (occurrence: IT)
  Receive Date: 20130604
  Receipt Date: 20130730
  Transmission Date: 20140515
  Serious: Yes (Hospitalization)
  Sender: FDA-Public Use
  Company Number: IT-PFIZER INC-2013167602

PATIENT
  Age: 89 Year
  Sex: Male

DRUGS (2)
  1. CORDARONE [Suspect]
     Dosage: 400 MG/DAY
     Route: 048
     Dates: start: 20120101
  2. BISOPROLOL [Suspect]
     Indication: HYPERTENSION
     Dosage: 10 MG/DAY
     Route: 048
     Dates: start: 20120101

REACTIONS (2)
  - Bradycardia [Not Recovered/Not Resolved]
  - Syncope [Not Recovered/Not Resolved]
